FAERS Safety Report 9244576 (Version 1)
Quarter: 2013Q1

REPORT INFORMATION
  Report Type: Spontaneous
  Country: US (occurrence: None)
  Receive Date: 20121128
  Receipt Date: 20121128
  Transmission Date: 20140127
  Serious: Yes (Other)
  Sender: FDA-Public Use
  Company Number: TRP_07280_2010

PATIENT
  Age: 48 Year
  Sex: Male
  Weight: 90.72 kg

DRUGS (5)
  1. INTERFERON ALFACON-1 [Suspect]
     Indication: HEPATITIS C
     Dosage: 3 IN 1 WK, SUBCUTANEOUS
     Route: 058
     Dates: start: 201204
  2. RIBAVIRIN [Suspect]
     Dosage: 1200MG, 2 IN 1 D, ORAL
     Dates: start: 201204
  3. MVI [Concomitant]
  4. VITAMIN C [Concomitant]
  5. MILK THISTLE [Concomitant]

REACTIONS (4)
  - White blood cell count decreased [None]
  - Hepatitis C RNA fluctuation [None]
  - Therapeutic response decreased [None]
  - Product quality issue [None]
